FAERS Safety Report 11626122 (Version 1)
Quarter: 2015Q4

REPORT INFORMATION
  Report Type: Spontaneous
  Country: US (occurrence: US)
  Receive Date: 20151013
  Receipt Date: 20151013
  Transmission Date: 20160304
  Serious: Yes (Other)
  Sender: FDA-Public Use
  Company Number: US-PFIZER INC-2015336121

PATIENT
  Age: 72 Year
  Sex: Female
  Weight: 56 kg

DRUGS (11)
  1. JUXTAPID [Suspect]
     Active Substance: LOMITAPIDE MESYLATE
     Indication: TYPE IIA HYPERLIPIDAEMIA
     Dosage: 5 MG, UNK
     Dates: start: 20130708
  2. ASPIRIN. [Concomitant]
     Active Substance: ASPIRIN
     Dosage: 81 MG, UNK
  3. CRESTOR [Concomitant]
     Active Substance: ROSUVASTATIN CALCIUM
     Dosage: 5 MG, UNK
  4. AMOXICILLIN. [Suspect]
     Active Substance: AMOXICILLIN
     Indication: TYPE IIA HYPERLIPIDAEMIA
     Dosage: UNK
  5. PROTONIX [Concomitant]
     Active Substance: PANTOPRAZOLE SODIUM
     Dosage: 40 MG, UNK
  6. TOPROL XL [Concomitant]
     Active Substance: METOPROLOL SUCCINATE
     Dosage: 25 MG, UNK
  7. OMEGA 3-6-9 [Concomitant]
     Active Substance: FISH OIL
     Dosage: UNK
  8. DIFLUCAN [Suspect]
     Active Substance: FLUCONAZOLE
     Indication: TYPE IIA HYPERLIPIDAEMIA
     Dosage: UNK
     Route: 048
  9. NITROGLYCERIN. [Concomitant]
     Active Substance: NITROGLYCERIN
     Dosage: 0.4 MG, UNK
  10. VITAMIN D3 [Concomitant]
     Active Substance: CHOLECALCIFEROL
     Dosage: UNK
  11. EFFIENT [Concomitant]
     Active Substance: PRASUGREL HYDROCHLORIDE
     Dosage: 5 MG, UNK

REACTIONS (13)
  - Tooth infection [Recovered/Resolved]
  - Liver function test abnormal [Recovered/Resolved]
  - Contusion [Unknown]
  - Weight decreased [Not Recovered/Not Resolved]
  - Eructation [Recovered/Resolved]
  - Flatulence [Recovered/Resolved]
  - Abdominal distension [Recovered/Resolved]
  - Dyspepsia [Recovered/Resolved]
  - Hepatomegaly [Recovered/Resolved]
  - Gastrointestinal sounds abnormal [Recovered/Resolved]
  - Nausea [Recovered/Resolved]
  - Fungal infection [Recovered/Resolved]
  - Contraindicated drug administered [Unknown]

NARRATIVE: CASE EVENT DATE: 2014
